FAERS Safety Report 16970034 (Version 2)
Quarter: 2019Q4

REPORT INFORMATION
  Report Type: Spontaneous
  Country: CH (occurrence: CH)
  Receive Date: 20191029
  Receipt Date: 20191105
  Transmission Date: 20200122
  Serious: Yes (Other)
  Sender: FDA-Public Use
  Company Number: CH-SA-2019SA296014

PATIENT

DRUGS (2)
  1. PRALUENT [Suspect]
     Active Substance: ALIROCUMAB
  2. ATORVASTATIN [Concomitant]
     Active Substance: ATORVASTATIN

REACTIONS (4)
  - Constipation [Unknown]
  - Muscle rupture [Unknown]
  - Muscle spasms [Unknown]
  - Visual impairment [Unknown]

NARRATIVE: CASE EVENT DATE: 201910
